FAERS Safety Report 17229650 (Version 8)
Quarter: 2020Q1

REPORT INFORMATION
  Report Type: Report from Study
  Country: RU (occurrence: RU)
  Receive Date: 20200103
  Receipt Date: 20200207
  Transmission Date: 20200409
  Serious: Yes (Death, Life-Threatening, Hospitalization)
  Sender: FDA-Public Use
  Company Number: RU-EISAI MEDICAL RESEARCH-EC-2020-068009

PATIENT
  Age: 64 Year
  Sex: Male
  Weight: 87.6 kg

DRUGS (6)
  1. BUSCOPAN [Concomitant]
     Active Substance: BUTYLSCOPOLAMINE BROMIDE
     Dates: start: 20191206
  2. KREON [Concomitant]
     Active Substance: PANCRELIPASE
     Dates: start: 20191206
  3. KETOROL [Concomitant]
     Active Substance: KETOROLAC TROMETHAMINE
     Dates: start: 20191210
  4. LENVATINIB [Suspect]
     Active Substance: LENVATINIB
     Indication: HEPATOCELLULAR CARCINOMA
     Route: 048
     Dates: start: 20191031, end: 20191206
  5. PEMBROLIZUMAB. [Suspect]
     Active Substance: PEMBROLIZUMAB
     Route: 041
     Dates: start: 20191122, end: 20191122
  6. PEMBROLIZUMAB. [Suspect]
     Active Substance: PEMBROLIZUMAB
     Indication: HEPATOCELLULAR CARCINOMA
     Route: 041
     Dates: start: 20191031, end: 20191031

REACTIONS (2)
  - Malignant neoplasm progression [Fatal]
  - Immune-mediated hepatitis [Unknown]

NARRATIVE: CASE EVENT DATE: 20191225
